FAERS Safety Report 13324930 (Version 2)
Quarter: 2017Q1

REPORT INFORMATION
  Report Type: Report from Study
  Country: US (occurrence: US)
  Receive Date: 20170310
  Receipt Date: 20170327
  Transmission Date: 20170428
  Serious: Yes (Other)
  Sender: FDA-Public Use
  Company Number: US-BIOGEN-2017BI00366368

PATIENT
  Age: 62 Year
  Sex: Male

DRUGS (1)
  1. ALPROLIX [Suspect]
     Active Substance: EFTRENONACOG ALFA
     Indication: FACTOR IX DEFICIENCY
     Route: 065
     Dates: start: 20150109

REACTIONS (9)
  - Contusion [Unknown]
  - Skin abrasion [Unknown]
  - Fall [Recovered/Resolved]
  - Ligament sprain [Recovered/Resolved]
  - Haemorrhage [Recovered/Resolved]
  - Factor IX inhibition [Unknown]
  - Gait disturbance [Recovered/Resolved]
  - Skin mass [Unknown]
  - Laceration [Unknown]

NARRATIVE: CASE EVENT DATE: 201701
